FAERS Safety Report 8581243-2 (Version None)
Quarter: 2012Q3

REPORT INFORMATION
  Report Type: 
  Country: None (occurrence: None)
  Receive Date: 20120809
  Receipt Date: 20120806
  Transmission Date: 20120928
  Serious: Yes (Hospitalization, Other)
  Sender: FDA-Public Use
  Company Number: PHHY2012BR059230

PATIENT
  Sex: Male

DRUGS (3)
  1. DIOVAN [Suspect]
     Indication: HYPERTENSION
     Dosage: 1 DF, DAILY
     Route: 048
     Dates: start: 20080101
  2. CITALOPRAM HYDROBROMIDE [Concomitant]
     Indication: ANXIETY
     Dosage: 20 MG, QD
  3. VASOGARD [Concomitant]
     Indication: ARTERIAL DISORDER
     Dosage: 100 MG, QD

REACTIONS (4)
  - THYROID DISORDER [None]
  - PROSTATOMEGALY [None]
  - PNEUMONIA [None]
  - BRONCHITIS CHRONIC [None]
